FAERS Safety Report 16761404 (Version 2)
Quarter: 2019Q4

REPORT INFORMATION
  Report Type: Spontaneous
  Country: GB (occurrence: GB)
  Receive Date: 20190830
  Receipt Date: 20191220
  Transmission Date: 20200122
  Serious: Yes (Other)
  Sender: FDA-Public Use
  Company Number: GB-ARRAY-2019-06250

PATIENT

DRUGS (3)
  1. CETUXIMAB. [Concomitant]
     Active Substance: CETUXIMAB
     Indication: GASTROINTESTINAL CARCINOMA
     Dosage: UNK, EVERY FEW WEEKS
     Route: 042
  2. MEKTOVI [Suspect]
     Active Substance: BINIMETINIB
     Indication: GASTROINTESTINAL CARCINOMA
     Dosage: UNK UNK, DAILY
     Route: 065
  3. BRAFTOVI [Suspect]
     Active Substance: ENCORAFENIB
     Indication: GASTROINTESTINAL CARCINOMA
     Dosage: UNK UNK, QD
     Route: 065

REACTIONS (7)
  - Central vision loss [Recovered/Resolved]
  - Infusion related reaction [Unknown]
  - Vision blurred [Recovered/Resolved]
  - Product use in unapproved indication [Unknown]
  - Panic attack [Unknown]
  - Crying [Unknown]
  - Visual impairment [Recovered/Resolved]

NARRATIVE: CASE EVENT DATE: 201908
